FAERS Safety Report 13278577 (Version 1)
Quarter: 2017Q1

REPORT INFORMATION
  Report Type: Spontaneous
  Country: SI (occurrence: SI)
  Receive Date: 20170228
  Receipt Date: 20170228
  Transmission Date: 20170428
  Serious: Yes (Other)
  Sender: FDA-Public Use
  Company Number: SI-REGENERON PHARMACEUTICALS, INC.-2017-12577

PATIENT

DRUGS (4)
  1. EYLEA [Suspect]
     Active Substance: AFLIBERCEPT
     Indication: NEOVASCULAR AGE-RELATED MACULAR DEGENERATION
     Dosage: 1 DF, Q1MON; 10 INJECTIONS
     Route: 031
     Dates: start: 20141021, end: 201507
  2. EYLEA [Suspect]
     Active Substance: AFLIBERCEPT
     Dosage: 1 DF, Q6WK; TOTAL OF 14 INJECTIONS
     Route: 031
  3. EYLEA [Suspect]
     Active Substance: AFLIBERCEPT
     Dosage: 1 DF, Q6WK
     Route: 031
     Dates: start: 201508
  4. EYLEA [Suspect]
     Active Substance: AFLIBERCEPT
     Dosage: 1 DF, Q8WK
     Route: 031

REACTIONS (2)
  - Retinal pigment epithelial tear [Unknown]
  - Macular oedema [Unknown]

NARRATIVE: CASE EVENT DATE: 2014
